FAERS Safety Report 15230147 (Version 1)
Quarter: 2018Q3

REPORT INFORMATION
  Report Type: Spontaneous
  Country: US (occurrence: US)
  Receive Date: 20180802
  Receipt Date: 20180802
  Transmission Date: 20181010
  Serious: Yes (Hospitalization)
  Sender: FDA-Public Use
  Company Number: US-JNJFOC-20180726739

PATIENT
  Age: 77 Year
  Sex: Male

DRUGS (13)
  1. INLYTA [Concomitant]
     Active Substance: AXITINIB
  2. FAMOTIDINE. [Concomitant]
     Active Substance: FAMOTIDINE
  3. LEVOTHYROXINE. [Concomitant]
     Active Substance: LEVOTHYROXINE
  4. BRIMONIDINE [Concomitant]
     Active Substance: BRIMONIDINE TARTRATE
  5. LOVENOX [Concomitant]
     Active Substance: ENOXAPARIN SODIUM
  6. IMBRUVICA [Suspect]
     Active Substance: IBRUTINIB
     Indication: MANTLE CELL LYMPHOMA
     Route: 048
     Dates: start: 201805
  7. OXYCODONE [Concomitant]
     Active Substance: OXYCODONE
  8. DEXAMETHASONE. [Concomitant]
     Active Substance: DEXAMETHASONE
  9. IMBRUVICA [Suspect]
     Active Substance: IBRUTINIB
     Indication: MANTLE CELL LYMPHOMA
     Route: 048
     Dates: start: 201706
  10. MULTIVITAMINS [Concomitant]
     Active Substance: VITAMINS
  11. LATANOPROST. [Concomitant]
     Active Substance: LATANOPROST
  12. VALACYCLOVIR [Concomitant]
     Active Substance: VALACYCLOVIR HYDROCHLORIDE
  13. IRON [Concomitant]
     Active Substance: IRON

REACTIONS (3)
  - Incorrect dose administered [Unknown]
  - Metastatic renal cell carcinoma [Unknown]
  - Off label use [Unknown]

NARRATIVE: CASE EVENT DATE: 201805
